FAERS Safety Report 8937155 (Version 1)
Quarter: 2012Q4

REPORT INFORMATION
  Report Type: Spontaneous
  Country: US (occurrence: None)
  Receive Date: 20121128
  Receipt Date: 20121128
  Transmission Date: 20130627
  Serious: Yes (Hospitalization)
  Sender: FDA-Public Use
  Company Number: None

PATIENT
  Age: 44 Year
  Sex: Female
  Weight: 78.9 kg

DRUGS (13)
  1. COUMADIN [Suspect]
     Indication: PULMONARY EMBOLISM
     Dosage: 2mg once po
     Route: 048
  2. COUMADIN [Suspect]
     Indication: DVT
     Dosage: 2mg once po
     Route: 048
  3. COUMADIN [Suspect]
     Route: 048
  4. CLONIDINE [Concomitant]
  5. LISINOPRIL [Suspect]
  6. METOPROLOL [Concomitant]
  7. ZOLOFT [Concomitant]
  8. SPIRONOLACTONE [Concomitant]
  9. ALBUTEROL [Concomitant]
  10. DILAUD [Concomitant]
  11. ATIVAN [Concomitant]
  12. PHENERGAN [Concomitant]
  13. AMBIEN [Concomitant]

REACTIONS (7)
  - International normalised ratio increased [None]
  - Hypoprothrombinaemia [None]
  - Anaemia [None]
  - Tachycardia [None]
  - Dyspnoea [None]
  - Mental status changes [None]
  - Hypertension [None]
